FAERS Safety Report 23725938 (Version 3)
Quarter: 2025Q2

REPORT INFORMATION
  Report Type: Report from Study
  Country: US (occurrence: US)
  Receive Date: 20240410
  Receipt Date: 20250501
  Transmission Date: 20250716
  Serious: Yes (Other)
  Sender: ABBVIE
  Company Number: US-ABBVIE-5712104

PATIENT
  Age: 60 Year
  Sex: Male

DRUGS (1)
  1. SKYRIZI [Suspect]
     Active Substance: RISANKIZUMAB-RZAA
     Indication: Crohn^s disease
     Route: 058
     Dates: start: 20240301

REACTIONS (4)
  - Stoma site reaction [Not Recovered/Not Resolved]
  - Intestinal resection [Not Recovered/Not Resolved]
  - Hernia [Unknown]
  - Scar [Unknown]

NARRATIVE: CASE EVENT DATE: 20240401
